FAERS Safety Report 5915004-7 (Version None)
Quarter: 2008Q4

REPORT INFORMATION
  Report Type: 
  Country: None (occurrence: None)
  Receive Date: 20081008
  Receipt Date: 20080924
  Transmission Date: 20090506
  Serious: Yes (Other)
  Sender: FDA-Public Use
  Company Number: 1000001209

PATIENT
  Age: 52 Year
  Sex: Female

DRUGS (3)
  1. ESCITALOPRAM OXALATE [Suspect]
     Dosage: (30 MG, ONCE), ORAL
     Route: 048
     Dates: start: 20080924, end: 20080924
  2. BETADORM (50 MILLIGRAM) [Suspect]
     Dosage: (300 MG, ONCE), ORAL
     Route: 048
     Dates: start: 20080924, end: 20080924
  3. ALCOHOL [Suspect]
     Dosage: 3 LITERS (ONCE), ORAL
     Route: 048
     Dates: start: 20080924, end: 20080924

REACTIONS (3)
  - MENTAL RETARDATION [None]
  - MULTIPLE DRUG OVERDOSE INTENTIONAL [None]
  - SUICIDE ATTEMPT [None]
